FAERS Safety Report 13973312 (Version 6)
Quarter: 2019Q1

REPORT INFORMATION
  Report Type: Spontaneous
  Country: GB (occurrence: GB)
  Receive Date: 20170915
  Receipt Date: 20190130
  Transmission Date: 20190417
  Serious: Yes (Hospitalization, Other)
  Sender: FDA-Public Use
  Company Number: GB-AMGEN-GBRSP2015068696

PATIENT
  Age: 54 Year
  Sex: Female

DRUGS (1)
  1. ENBREL [Suspect]
     Active Substance: ETANERCEPT
     Indication: RHEUMATOID ARTHRITIS
     Dosage: 50 MG, EVERY 10 DAYS
     Route: 058
     Dates: start: 20131016, end: 2015

REACTIONS (9)
  - Viral infection [Unknown]
  - Vertigo [Unknown]
  - Tooth abscess [Unknown]
  - Lower respiratory tract infection [Unknown]
  - Infection [Unknown]
  - Product use issue [Unknown]
  - Malaise [Unknown]
  - Urinary tract infection [Unknown]
  - Decreased immune responsiveness [Unknown]

NARRATIVE: CASE EVENT DATE: 2015
